FAERS Safety Report 14014564 (Version 1)
Quarter: 2017Q3

REPORT INFORMATION
  Report Type: Other
  Country: GB (occurrence: GB)
  Receive Date: 20170927
  Receipt Date: 20170927
  Transmission Date: 20171128
  Serious: Yes (Death, Other)
  Sender: FDA-Public Use
  Company Number: GB-CLARIS PHARMASERVICES-2027860

PATIENT
  Age: 76 Year
  Sex: Male

DRUGS (2)
  1. VOTRIENT [Suspect]
     Active Substance: PAZOPANIB HYDROCHLORIDE
     Dates: start: 20170523
  2. FLUCONAZOLE. [Suspect]
     Active Substance: FLUCONAZOLE

REACTIONS (2)
  - Death [Fatal]
  - Drug interaction [Not Recovered/Not Resolved]
